FAERS Safety Report 8886678 (Version 3)
Quarter: 2013Q1

REPORT INFORMATION
  Report Type: Spontaneous
  Country: JP (occurrence: JP)
  Receive Date: 20121105
  Receipt Date: 20130222
  Transmission Date: 20140127
  Serious: Yes (Hospitalization)
  Sender: FDA-Public Use
  Company Number: JP-TEVA-368531USA

PATIENT
  Age: 80 Year
  Sex: Male

DRUGS (10)
  1. TREANDA [Suspect]
     Indication: B-CELL LYMPHOMA
     Dosage: UID/QD
     Route: 042
     Dates: start: 20121016, end: 20121017
  2. TREANDA [Suspect]
     Dosage: UID/QD
     Route: 042
     Dates: start: 20121017
  3. RITUXIMAB [Suspect]
     Route: 042
     Dates: start: 20121016
  4. DEXAMETHASONE SODIUM PHOSPHATE [Suspect]
     Route: 042
     Dates: start: 20121016, end: 20121017
  5. PALONOSETRON HYDROCHLORIDE [Concomitant]
     Dates: start: 20121016, end: 20121016
  6. ALLOPURINOL [Concomitant]
     Dates: start: 20121016, end: 20121105
  7. POTASSIUM CITRATE WITH SODIUM CITRATE [Concomitant]
     Dates: start: 20121016, end: 20121105
  8. SODIUM RABEPRAZOLE [Concomitant]
     Dates: start: 20121016, end: 20121105
  9. IRSOGLADINE MALEATE [Concomitant]
     Indication: GASTRITIS
     Dates: start: 20121016
  10. ETIZOLAM [Concomitant]
     Indication: ANXIETY
     Dates: start: 20121025

REACTIONS (2)
  - Atrial fibrillation [Recovered/Resolved]
  - Cardiac failure chronic [Recovering/Resolving]
